FAERS Safety Report 22208630 (Version 2)
Quarter: 2023Q4

REPORT INFORMATION
  Report Type: Spontaneous
  Country: US (occurrence: US)
  Receive Date: 20230413
  Receipt Date: 20231009
  Transmission Date: 20240109
  Serious: No
  Sender: FDA-Public Use
  Company Number: US-BRISTOL-MYERS SQUIBB COMPANY-2023-052830

PATIENT
  Age: 72 Year
  Sex: Male
  Weight: 109 kg

DRUGS (31)
  1. LENALIDOMIDE [Suspect]
     Active Substance: LENALIDOMIDE
     Indication: Plasma cell myeloma
     Dosage: FREQ- 8
  2. LENALIDOMIDE [Suspect]
     Active Substance: LENALIDOMIDE
     Dosage: FREQ- 14/21 CYCLE 1 DAILY
     Route: 048
     Dates: start: 20230419
  3. LENALIDOMIDE [Suspect]
     Active Substance: LENALIDOMIDE
     Dosage: FREQ- 14/21 CYCLE 1 DAILY
     Route: 048
     Dates: start: 20230412, end: 20230504
  4. LENALIDOMIDE [Suspect]
     Active Substance: LENALIDOMIDE
     Dosage: FREQ- 14/21 CYCLE 1 DAILY
     Route: 048
     Dates: start: 20230504, end: 20230605
  5. LENALIDOMIDE [Suspect]
     Active Substance: LENALIDOMIDE
     Dosage: FREQ- 14/21 CYCLE 1 DAILY
     Route: 048
     Dates: start: 20230605, end: 20230623
  6. LENALIDOMIDE [Suspect]
     Active Substance: LENALIDOMIDE
     Dosage: FREQ- 14/21 CYCLE 1 DAILY
     Route: 048
     Dates: start: 20230623, end: 20230712
  7. LENALIDOMIDE [Suspect]
     Active Substance: LENALIDOMIDE
     Dosage: FREQ- 14/21 CYCLE 1 DAILY
     Route: 048
     Dates: start: 20230712, end: 20230802
  8. LENALIDOMIDE [Suspect]
     Active Substance: LENALIDOMIDE
     Dosage: FREQ- 14/21 CYCLE 1 DAILY
     Route: 048
     Dates: start: 20230802, end: 20230821
  9. LENALIDOMIDE [Suspect]
     Active Substance: LENALIDOMIDE
     Dosage: FREQ- 14/21 CYCLE 1 DAILY
     Route: 048
     Dates: start: 20230821, end: 20230914
  10. LENALIDOMIDE [Suspect]
     Active Substance: LENALIDOMIDE
     Dosage: FREQ- 14/21 CYCLE 1 DAILY
     Route: 048
     Dates: start: 20230914, end: 20230929
  11. LENALIDOMIDE [Suspect]
     Active Substance: LENALIDOMIDE
     Dosage: FREQ- 14/21 CYCLE 1 DAILY
     Route: 048
     Dates: start: 20230929, end: 20230929
  12. LENALIDOMIDE [Suspect]
     Active Substance: LENALIDOMIDE
     Dosage: FREQ- 14/21 CYCLE 1 DAILY
     Route: 048
     Dates: start: 20230109, end: 20230202
  13. LENALIDOMIDE [Suspect]
     Active Substance: LENALIDOMIDE
     Dosage: FREQ- 14/21 CYCLE 1 DAILY
     Route: 048
     Dates: start: 20230202, end: 20230202
  14. LENALIDOMIDE [Suspect]
     Active Substance: LENALIDOMIDE
     Dosage: FREQ- 14/21 CYCLE 1 DAILY
     Route: 048
     Dates: start: 20230202, end: 20230220
  15. LENALIDOMIDE [Suspect]
     Active Substance: LENALIDOMIDE
     Dosage: FREQ- 14/21 CYCLE 1 DAILY
     Route: 048
     Dates: start: 20230220, end: 20230324
  16. LENALIDOMIDE [Suspect]
     Active Substance: LENALIDOMIDE
     Dosage: FREQ- 14/21 CYCLE 1 DAILY
     Route: 048
     Dates: start: 20230324, end: 20230413
  17. ELIQUIS [Concomitant]
     Active Substance: APIXABAN
     Indication: Product used for unknown indication
     Route: 048
     Dates: start: 20230118
  18. ACYCLOVIR [Concomitant]
     Active Substance: ACYCLOVIR
     Indication: Product used for unknown indication
     Route: 048
     Dates: start: 20230109
  19. CITALOPRAM HYDROBROMIDE [Concomitant]
     Active Substance: CITALOPRAM HYDROBROMIDE
     Indication: Product used for unknown indication
     Route: 048
     Dates: start: 20230109
  20. CREON [Concomitant]
     Active Substance: PANCRELIPASE AMYLASE\PANCRELIPASE LIPASE\PANCRELIPASE PROTEASE
     Indication: Product used for unknown indication
     Route: 048
     Dates: start: 20230310
  21. DEXAMETHASONE [Concomitant]
     Active Substance: DEXAMETHASONE
     Indication: Product used for unknown indication
     Route: 048
     Dates: start: 20230821, end: 20230915
  22. DEXAMETHASONE [Concomitant]
     Active Substance: DEXAMETHASONE
     Route: 048
     Dates: start: 20230109
  23. FERROUS SULFATE [Concomitant]
     Active Substance: FERROUS SULFATE
     Indication: Product used for unknown indication
     Route: 048
     Dates: start: 20230118
  24. MELOXICAM [Concomitant]
     Active Substance: MELOXICAM
     Indication: Product used for unknown indication
     Route: 048
     Dates: start: 20230109
  25. ONE DAILY MENS 50 [Concomitant]
     Indication: Product used for unknown indication
     Route: 048
     Dates: start: 20230118
  26. PROCHLORPERAZINE MALEATE [Concomitant]
     Active Substance: PROCHLORPERAZINE MALEATE
     Indication: Product used for unknown indication
     Route: 048
     Dates: start: 20230118
  27. SUPER OMEGA 3 [FISH OIL] [Concomitant]
     Indication: Product used for unknown indication
     Route: 048
     Dates: start: 20230118
  28. TAMSULOSIN HYDROCHLORIDE [Concomitant]
     Active Substance: TAMSULOSIN HYDROCHLORIDE
     Indication: Product used for unknown indication
     Route: 048
     Dates: start: 20230109
  29. VELCADE [Concomitant]
     Active Substance: BORTEZOMIB
     Indication: Product used for unknown indication
     Dates: start: 20230118
  30. GLUCOSAMINE CHONDROITIN [CHONDROITIN SULFATE SODIUM;GLUCOSAMINE] [Concomitant]
     Indication: Product used for unknown indication
     Route: 048
     Dates: start: 20230118
  31. HYDROXOCOBALAMIN [Concomitant]
     Active Substance: HYDROXOCOBALAMIN
     Indication: Product used for unknown indication
     Dates: start: 20230118

REACTIONS (6)
  - Full blood count decreased [Unknown]
  - Diarrhoea [Recovering/Resolving]
  - Taste disorder [Recovering/Resolving]
  - Fatigue [Recovering/Resolving]
  - Weight decreased [Recovering/Resolving]
  - Off label use [Unknown]

NARRATIVE: CASE EVENT DATE: 20230924
